FAERS Safety Report 5038944-2 (Version None)
Quarter: 2006Q2

REPORT INFORMATION
  Report Type: 
  Country: None (occurrence: None)
  Receive Date: 20060626
  Receipt Date: 20060626
  Transmission Date: 20061013
  Serious: Yes (Other)
  Sender: FDA-Public Use
  Company Number: None

PATIENT
  Age: 52 Year
  Sex: Male
  Weight: 112.9457 kg

DRUGS (2)
  1. FLUOXETINE [Suspect]
     Dosage: 20 MG 3X DAILY ONCE (60 MG) PO
     Route: 048
     Dates: start: 20041108
  2. FLUOXETINE [Suspect]
     Dosage: 20 MG 3X DAILY ONCE (60 MG) PO
     Route: 048
     Dates: start: 20060613

REACTIONS (3)
  - PHARMACEUTICAL PRODUCT COMPLAINT [None]
  - SUICIDAL IDEATION [None]
  - THERAPEUTIC RESPONSE UNEXPECTED WITH DRUG SUBSTITUTION [None]
